FAERS Safety Report 15864408 (Version 10)
Quarter: 2022Q1

REPORT INFORMATION
  Report Type: Report from Study
  Country: IL (occurrence: IL)
  Receive Date: 20190124
  Receipt Date: 20220331
  Transmission Date: 20220423
  Serious: Yes (Death, Life-Threatening, Hospitalization)
  Sender: FDA-Public Use
  Company Number: IL-PFIZER INC-2019026200

PATIENT
  Age: 77 Year
  Sex: Male
  Weight: 58.8 kg

DRUGS (8)
  1. AVELUMAB [Suspect]
     Active Substance: AVELUMAB
     Indication: Non-small cell lung cancer
     Dosage: 10 MG/KG, ONCE EVERY 2 WEEKS
     Route: 042
     Dates: start: 20181209, end: 20190113
  2. INLYTA [Suspect]
     Active Substance: AXITINIB
     Indication: Non-small cell lung cancer
     Dosage: 5 MG, 2X/DAY
     Route: 048
     Dates: start: 20181209, end: 20190113
  3. IBRANCE [Suspect]
     Active Substance: PALBOCICLIB
     Indication: Non-small cell lung cancer
     Dosage: 100 MG, 1X/DAY
     Route: 048
     Dates: start: 20181216, end: 20190105
  4. JANUMET [Concomitant]
     Active Substance: METFORMIN HYDROCHLORIDE\SITAGLIPTIN PHOSPHATE
     Indication: Diabetes mellitus
     Dosage: DAILY (50/850 MG)
     Route: 048
     Dates: start: 2013
  5. VERAPRESS [Concomitant]
     Indication: Hypertension
     Dosage: 1 DF, DAILY
     Route: 048
     Dates: start: 2005
  6. NALOXONE HYDROCHLORIDE\OXYCODONE HYDROCHLORIDE [Concomitant]
     Active Substance: NALOXONE HYDROCHLORIDE\OXYCODONE HYDROCHLORIDE
     Indication: Tumour pain
     Dosage: AS NEEDED (10 MG/5 MG)
     Route: 048
     Dates: start: 201811
  7. METAMIZOLE [Concomitant]
     Active Substance: METAMIZOLE
     Indication: Tumour pain
     Dosage: 500 MG, AS NEEDED
     Route: 048
     Dates: start: 201811
  8. SERETIDE [Concomitant]
     Active Substance: FLUTICASONE PROPIONATE\SALMETEROL XINAFOATE
     Indication: Chronic obstructive pulmonary disease
     Dosage: UNK, AS NEEDED (50/250)
     Route: 055
     Dates: start: 2005

REACTIONS (1)
  - Respiratory failure [Fatal]

NARRATIVE: CASE EVENT DATE: 20190117
